FAERS Safety Report 8804714 (Version 1)
Quarter: 2012Q4

REPORT INFORMATION
  Report Type: 
  Country: US (occurrence: US)
  Receive Date: 20120924
  Receipt Date: 20120924
  Transmission Date: 20130627
  Serious: No
  Sender: FDA-Public Use
  Company Number: US-VERTEX PHARMACEUTICAL INC.-2012-020947

PATIENT
  Sex: Male
  Weight: 77 kg

DRUGS (3)
  1. INCIVEK [Suspect]
     Indication: HEPATITIS C
     Dosage: 750 mg, tid
     Route: 048
     Dates: start: 20120313, end: 20120605
  2. PEGASYS [Suspect]
     Indication: HEPATITIS C
     Dosage: 180 ?g, UNK
     Route: 058
     Dates: start: 20120313, end: 20120807
  3. RIBAVIRIN [Suspect]
     Dosage: 600 mg, bid
     Route: 048
     Dates: start: 20120313, end: 20120813

REACTIONS (3)
  - Bronchitis [Unknown]
  - Chills [Unknown]
  - Feeling abnormal [Unknown]
